FAERS Safety Report 20485468 (Version 2)
Quarter: 2022Q1

REPORT INFORMATION
  Report Type: Spontaneous
  Country: DE (occurrence: DE)
  Receive Date: 20220217
  Receipt Date: 20220228
  Transmission Date: 20220424
  Serious: Yes (Life-Threatening, Hospitalization, Disabling)
  Sender: FDA-Public Use
  Company Number: DE-DCGMA-22196492

PATIENT
  Age: 59 Year
  Sex: Female

DRUGS (2)
  1. ARIPIPRAZOLE [Suspect]
     Active Substance: ARIPIPRAZOLE
     Indication: Sleep disorder
     Dosage: 2.5 MG
     Route: 048
  2. QUETIAPINE [Suspect]
     Active Substance: QUETIAPINE
     Indication: Sleep disorder
     Dosage: 12.5 MG DURATION 09 MONTH
     Route: 048
     Dates: start: 20210330, end: 20220102

REACTIONS (4)
  - Skin swelling [Unknown]
  - Oedema mucosal [Unknown]
  - Pleural effusion [Unknown]
  - Product use in unapproved indication [Unknown]

NARRATIVE: CASE EVENT DATE: 20220102
